FAERS Safety Report 7389109-0 (Version None)
Quarter: 2011Q1

REPORT INFORMATION
  Report Type: 
  Country: None (occurrence: None)
  Receive Date: 20110329
  Receipt Date: 20110329
  Transmission Date: 20110831
  Serious: Yes (Other)
  Sender: FDA-Public Use
  Company Number: None

PATIENT
  Age: 50 Year
  Sex: Female
  Weight: 113.3993 kg

DRUGS (1)
  1. AMOXICILLIN [Suspect]
     Indication: SINUSITIS
     Dosage: 500 MG (GG849) EVERY 8 HRS. BY MOUTH
     Route: 048
     Dates: start: 20110306, end: 20110307

REACTIONS (2)
  - RASH MACULAR [None]
  - PRURITUS [None]
